FAERS Safety Report 9867477 (Version 1)
Quarter: 2014Q1

REPORT INFORMATION
  Report Type: Spontaneous
  Country: DE (occurrence: DE)
  Receive Date: 20140204
  Receipt Date: 20140204
  Transmission Date: 20141002
  Serious: Yes (Death, Other)
  Sender: FDA-Public Use
  Company Number: PHHY2014DE012616

PATIENT
  Age: 72 Year
  Sex: Female

DRUGS (1)
  1. AFINITOR [Suspect]
     Dosage: 10 MG, PER DAY
     Route: 048
     Dates: start: 20131018, end: 20131129

REACTIONS (4)
  - Death [Fatal]
  - Thrombocytopenia [Unknown]
  - Stomatitis [Unknown]
  - Diarrhoea [Unknown]
